FAERS Safety Report 8109020-7 (Version None)
Quarter: 2012Q1

REPORT INFORMATION
  Report Type: 
  Country: None (occurrence: None)
  Receive Date: 20120202
  Receipt Date: 20120106
  Transmission Date: 20120608
  Serious: No
  Sender: FDA-Public Use
  Company Number: US-AMGEN-USASP2012001055

PATIENT
  Age: 67 Year
  Sex: Female

DRUGS (1)
  1. ENBREL [Suspect]
     Indication: PSORIASIS
     Dosage: 50 MG, QWK
     Dates: start: 20061121, end: 20111229

REACTIONS (8)
  - EYE PAIN [None]
  - MALAISE [None]
  - MIGRAINE [None]
  - MUSCULOSKELETAL PAIN [None]
  - BACK PAIN [None]
  - PAIN [None]
  - NAUSEA [None]
  - PAIN IN EXTREMITY [None]
